FAERS Safety Report 13784297 (Version 1)
Quarter: 2017Q3

REPORT INFORMATION
  Report Type: Spontaneous
  Country: PL (occurrence: PL)
  Receive Date: 20170724
  Receipt Date: 20170724
  Transmission Date: 20171127
  Serious: Yes (Other)
  Sender: FDA-Public Use
  Company Number: PHHY2017PL106098

PATIENT
  Age: 41 Year

DRUGS (8)
  1. FOLINIC ACID [Suspect]
     Active Substance: LEUCOVORIN
     Indication: PANCREATIC CARCINOMA
     Route: 065
  2. 5-FLUOROURACIL [Suspect]
     Active Substance: FLUOROURACIL
     Indication: PANCREATIC CARCINOMA
     Route: 065
  3. PARACETAMOL + TRAMADOL [Concomitant]
     Indication: PAIN
     Dosage: 1 DF, TID
     Route: 065
  4. IRINOTECAN [Suspect]
     Active Substance: IRINOTECAN
     Indication: PANCREATIC CARCINOMA
     Route: 065
  5. GEMCITABINE [Suspect]
     Active Substance: GEMCITABINE\GEMCITABINE HYDROCHLORIDE
     Indication: PANCREATIC CARCINOMA
     Route: 065
  6. FENTANYL. [Suspect]
     Active Substance: FENTANYL
     Indication: PAIN
     Route: 065
  7. OXALIPLATIN. [Suspect]
     Active Substance: OXALIPLATIN
     Indication: PRODUCT USED FOR UNKNOWN INDICATION
     Route: 065
  8. DROTAVERINE [Concomitant]
     Active Substance: DROTAVERINE
     Indication: PAIN
     Dosage: 80 MG, QD
     Route: 065

REACTIONS (8)
  - Leukopenia [Unknown]
  - Jaundice [Unknown]
  - Neuropathy peripheral [Unknown]
  - Neutropenia [Unknown]
  - Neuralgia [Unknown]
  - Weight increased [Unknown]
  - Pancreatic carcinoma metastatic [Not Recovered/Not Resolved]
  - Abdominal pain [Unknown]
